FAERS Safety Report 24110008 (Version 1)
Quarter: 2024Q3

REPORT INFORMATION
  Report Type: Spontaneous
  Country: CN (occurrence: CN)
  Receive Date: 20240718
  Receipt Date: 20240718
  Transmission Date: 20241017
  Serious: Yes (Death, Hospitalization, Other)
  Sender: GRANULES INDIA
  Company Number: CN-GRANULES-CN-2024GRALIT00264

PATIENT
  Age: 82 Year
  Sex: Female

DRUGS (1)
  1. COLCHICINE [Suspect]
     Active Substance: COLCHICINE
     Indication: Product used for unknown indication
     Route: 065

REACTIONS (5)
  - Cardiac arrest [Fatal]
  - Lactic acidosis [Unknown]
  - Acute kidney injury [Unknown]
  - Hepatic function abnormal [Unknown]
  - Intentional overdose [Unknown]
